FAERS Safety Report 21971368 (Version 1)
Quarter: 2023Q1

REPORT INFORMATION
  Report Type: Spontaneous
  Country: DE (occurrence: DE)
  Receive Date: 20230209
  Receipt Date: 20230209
  Transmission Date: 20230417
  Serious: Yes (Other)
  Sender: FDA-Public Use
  Company Number: DE-ALKEM LABORATORIES LIMITED-DE-ALKEM-2022-02972

PATIENT
  Age: 18 Year
  Sex: Male

DRUGS (1)
  1. GABAPENTIN [Suspect]
     Active Substance: GABAPENTIN
     Indication: Euphoric mood
     Dosage: 4000 MILLIGRAM DAILY
     Route: 065

REACTIONS (2)
  - Drug dependence [Unknown]
  - Overdose [Unknown]
